FAERS Safety Report 19948039 (Version 1)
Quarter: 2021Q4

REPORT INFORMATION
  Report Type: Report from Study
  Country: US (occurrence: US)
  Receive Date: 20211012
  Receipt Date: 20211012
  Transmission Date: 20220303
  Serious: No
  Sender: FDA-Public Use
  Company Number: US-SUNOVION-2021SUN003875

PATIENT

DRUGS (5)
  1. KYNMOBI [Suspect]
     Active Substance: APOMORPHINE HYDROCHLORIDE
     Dosage: 10 MG
     Route: 060
     Dates: start: 20211004
  2. KYNMOBI [Suspect]
     Active Substance: APOMORPHINE HYDROCHLORIDE
     Dosage: 15 MG
     Route: 060
     Dates: start: 20211007
  3. CINNAMON [Concomitant]
     Active Substance: CINNAMON
     Dosage: 50 MG
     Route: 048
  4. CLONAZEPAM [Concomitant]
     Active Substance: CLONAZEPAM
     Dosage: 1 MG
     Route: 048
  5. OPICAPONE [Concomitant]
     Active Substance: OPICAPONE
     Dosage: 50 MG

REACTIONS (4)
  - Blood pressure fluctuation [Unknown]
  - Heart rate variability increased [Unknown]
  - Blood pressure decreased [Recovered/Resolved]
  - Dyskinesia [Unknown]

NARRATIVE: CASE EVENT DATE: 20211004
